FAERS Safety Report 9121406 (Version 2)
Quarter: 2013Q1

REPORT INFORMATION
  Report Type: Spontaneous
  Country: FR (occurrence: AU)
  Receive Date: 20130225
  Receipt Date: 20130311
  Transmission Date: 20140127
  Serious: Yes (Hospitalization, Other)
  Sender: FDA-Public Use
  Company Number: FR-ROCHE-1192809

PATIENT
  Sex: Male
  Weight: 75 kg

DRUGS (3)
  1. LARIAM [Suspect]
     Indication: MALARIA
     Route: 065
     Dates: start: 2002
  2. LARIAM [Suspect]
     Route: 048
     Dates: start: 20121201, end: 20121210
  3. MALARONE [Suspect]
     Indication: PRODUCT USED FOR UNKNOWN INDICATION
     Route: 065

REACTIONS (4)
  - Loss of consciousness [Recovered/Resolved]
  - Visual impairment [Recovered/Resolved]
  - Dizziness [Recovered/Resolved]
  - Fall [Unknown]
